FAERS Safety Report 9643297 (Version 4)
Quarter: 2014Q1

REPORT INFORMATION
  Report Type: Spontaneous
  Country: SI (occurrence: SI)
  Receive Date: 20131024
  Receipt Date: 20140115
  Transmission Date: 20141002
  Serious: Yes (Life-Threatening)
  Sender: FDA-Public Use
  Company Number: SI-ELI_LILLY_AND_COMPANY-SI201310004976

PATIENT
  Age: 52 Year
  Sex: Female

DRUGS (4)
  1. DULOXETINE HYDROCHLORIDE [Suspect]
     Indication: MAJOR DEPRESSION
     Dosage: 30 MG, QD
  2. DULOXETINE HYDROCHLORIDE [Interacting]
     Dosage: 90 MG, QD
  3. BUPROPION [Interacting]
     Indication: MAJOR DEPRESSION
     Dosage: 300 MG, QD
     Route: 065
  4. ZOLPIDEM [Concomitant]
     Dosage: 5 MG, QD
     Route: 065

REACTIONS (5)
  - Long QT syndrome [Recovered/Resolved]
  - Drug interaction [Recovered/Resolved]
  - Palpitations [None]
  - Loss of consciousness [None]
  - Toxicity to various agents [None]
